FAERS Safety Report 21962572 (Version 2)
Quarter: 2023Q1

REPORT INFORMATION
  Report Type: Spontaneous
  Country: JP (occurrence: JP)
  Receive Date: 20230207
  Receipt Date: 20230321
  Transmission Date: 20230418
  Serious: Yes (Other)
  Sender: FDA-Public Use
  Company Number: JP-BAYER-2023A010917

PATIENT
  Age: 4 Decade
  Sex: Female

DRUGS (4)
  1. ADEMPAS [Suspect]
     Active Substance: RIOCIGUAT
     Indication: Mixed connective tissue disease
     Dosage: 2.5 MG, TID
     Route: 048
     Dates: start: 202209
  2. ADEMPAS [Suspect]
     Active Substance: RIOCIGUAT
     Indication: Pulmonary arterial hypertension
     Dosage: 1.5 MG, TID
     Route: 048
  3. SELEXIPAG [Concomitant]
     Active Substance: SELEXIPAG
     Dosage: 3.2MG DAILY
  4. MACITENTAN [Concomitant]
     Active Substance: MACITENTAN

REACTIONS (4)
  - Pulmonary hypertension [Not Recovered/Not Resolved]
  - Vascular resistance pulmonary increased [Not Recovered/Not Resolved]
  - Cardiac failure high output [Recovered/Resolved]
  - Collagen disorder [Not Recovered/Not Resolved]

NARRATIVE: CASE EVENT DATE: 20221201
